FAERS Safety Report 10003754 (Version 1)
Quarter: 2014Q1

REPORT INFORMATION
  Report Type: Spontaneous
  Country: ES (occurrence: ES)
  Receive Date: 20140312
  Receipt Date: 20140312
  Transmission Date: 20141002
  Serious: Yes (Hospitalization)
  Sender: FDA-Public Use
  Company Number: ES-BAYER-2014-033643

PATIENT
  Age: 77 Year
  Sex: Female

DRUGS (7)
  1. ADIRO 100 [Suspect]
     Indication: PROPHYLAXIS
     Dosage: 100 MG, QD
     Route: 048
     Dates: start: 20130409
  2. FUROSEMIDE [Suspect]
     Indication: CARDIAC FAILURE CONGESTIVE
     Dosage: 20 MG, TID
     Route: 042
     Dates: start: 20130405, end: 20130525
  3. DEXKETOPROFEN [Concomitant]
     Indication: PAIN
     Dosage: 50 MG/8H
     Route: 042
     Dates: start: 20130225, end: 20130322
  4. CLEXANE [Concomitant]
     Indication: ATRIAL FIBRILLATION
     Dosage: 40 MG/12H
     Route: 058
     Dates: start: 20130422
  5. METILDIGOXIN [Concomitant]
     Indication: ATRIAL FIBRILLATION
     Dosage: .1 MG, QD
     Route: 048
     Dates: start: 20130415
  6. METHYLPREDNISOLONE [Concomitant]
     Indication: BRONCHOSPASM
     Dosage: 40MG EVERY 12 HOURS DECREASING DOSE
     Route: 042
     Dates: start: 20130405
  7. PANTOPRAZOLE [Concomitant]
     Indication: PROPHYLAXIS AGAINST GASTROINTESTINAL ULCER
     Dosage: 40 MG, UNK
     Route: 042
     Dates: start: 20130224

REACTIONS (1)
  - Hypoacusis [Recovering/Resolving]
